FAERS Safety Report 21585790 (Version 7)
Quarter: 2025Q2

REPORT INFORMATION
  Report Type: Spontaneous
  Country: IN (occurrence: IN)
  Receive Date: 20221111
  Receipt Date: 20250423
  Transmission Date: 20250717
  Serious: Yes (Other)
  Sender: PFIZER
  Company Number: IN-PFIZER INC-2019346001

PATIENT
  Age: 47 Year
  Sex: Male
  Weight: 74 kg

DRUGS (9)
  1. SUTENT [Suspect]
     Active Substance: SUNITINIB MALATE
     Indication: Metastatic renal cell carcinoma
     Dosage: 50 MG, 1X/DAY
     Route: 048
     Dates: start: 20190430
  2. SUTENT [Suspect]
     Active Substance: SUNITINIB MALATE
     Dosage: 50 MG, 1X/DAY (2 WEEKS ON 1 WEEK OFF)
     Route: 048
     Dates: start: 201905
  3. SUTENT [Suspect]
     Active Substance: SUNITINIB MALATE
     Dosage: 50 MG, 1X/DAY (FOR 15DAYS ON AND 8DAYS)
     Route: 048
  4. SUTENT [Suspect]
     Active Substance: SUNITINIB MALATE
     Dosage: 50 MG, 1X/DAY (FOR 14DAYS (TO BE REPEATED WITH GAP OF 8 DAYS) X 6 MONTHS)
     Route: 048
     Dates: start: 2020
  5. SUTENT [Suspect]
     Active Substance: SUNITINIB MALATE
     Route: 048
  6. SUTENT [Suspect]
     Active Substance: SUNITINIB MALATE
     Route: 048
  7. LEVOTHYROXINE [Concomitant]
     Active Substance: LEVOTHYROXINE
     Dosage: 75 MG, DAILY (FOR 6 MONTHS)
  8. LEVOTHYROXINE [Concomitant]
     Active Substance: LEVOTHYROXINE
     Dosage: 100 UG, DAILY
  9. LEVOTHYROXINE [Concomitant]
     Active Substance: LEVOTHYROXINE
     Dosage: 150 MG, DAILY

REACTIONS (20)
  - Pyelocaliectasis [Not Recovered/Not Resolved]
  - Metastases to kidney [Unknown]
  - Dry skin [Recovered/Resolved]
  - Fungal infection [Recovered/Resolved]
  - Blood thyroid stimulating hormone increased [Recovering/Resolving]
  - Vitamin D decreased [Recovered/Resolved]
  - Yellow skin [Recovered/Resolved]
  - Pyrexia [Recovered/Resolved]
  - Cough [Recovered/Resolved]
  - Prostatomegaly [Not Recovered/Not Resolved]
  - Inguinal hernia [Not Recovered/Not Resolved]
  - Oral pain [Recovered/Resolved]
  - Renal hypertrophy [Unknown]
  - Platelet count decreased [Recovered/Resolved]
  - Blood creatinine increased [Not Recovered/Not Resolved]
  - Hepatic steatosis [Recovering/Resolving]
  - Thyroid atrophy [Recovering/Resolving]
  - Prostatic specific antigen increased [Recovered/Resolved]
  - Blood bilirubin increased [Recovering/Resolving]
  - Hypertension [Not Recovered/Not Resolved]

NARRATIVE: CASE EVENT DATE: 20190515
